FAERS Safety Report 5048428-3 (Version None)
Quarter: 2006Q3

REPORT INFORMATION
  Report Type: 
  Country: None (occurrence: None)
  Receive Date: 20060705
  Receipt Date: 20060627
  Transmission Date: 20061208
  Serious: Yes (Death)
  Sender: FDA-Public Use
  Company Number: SUS1-2006-00477

PATIENT
  Age: 9 Year
  Sex: Male
  Weight: 29.9 kg

DRUGS (4)
  1. ADDERALL XR 15 [Suspect]
     Indication: ATTENTION DEFICIT/HYPERACTIVITY DISORDER
     Dosage: SEE IMAGE
     Dates: start: 20021201, end: 20050701
  2. ADDERALL XR 15 [Suspect]
     Indication: ATTENTION DEFICIT/HYPERACTIVITY DISORDER
     Dosage: SEE IMAGE
     Dates: start: 20060201, end: 20060422
  3. SEROQUEL [Concomitant]
  4. GUANFACINE HYDROCHLORIDE XR (GUANFACINE HYDROCHLORIDE) [Concomitant]

REACTIONS (18)
  - ABNORMAL BEHAVIOUR [None]
  - BLOOD POTASSIUM DECREASED [None]
  - BRAIN DEATH [None]
  - BRAIN STEM SYNDROME [None]
  - CEREBRAL ISCHAEMIA [None]
  - CHEST PAIN [None]
  - CONFUSIONAL STATE [None]
  - CONVULSION [None]
  - DIABETES INSIPIDUS [None]
  - GASTROENTERITIS VIRAL [None]
  - HYPONATRAEMIA [None]
  - HYPOTENSION [None]
  - HYPOTHERMIA [None]
  - INJURY [None]
  - LOSS OF CONSCIOUSNESS [None]
  - MENTAL STATUS CHANGES [None]
  - PNEUMOTHORAX [None]
  - TIC [None]
